FAERS Safety Report 20225596 (Version 7)
Quarter: 2022Q2

REPORT INFORMATION
  Report Type: Report from Study
  Country: US (occurrence: US)
  Receive Date: 20211224
  Receipt Date: 20220616
  Transmission Date: 20220721
  Serious: Yes (Hospitalization, Other)
  Sender: FDA-Public Use
  Company Number: US-NOVARTISTESTPH-NVSC2021US294892

PATIENT
  Sex: Female
  Weight: 148 kg

DRUGS (1)
  1. ENTRESTO [Suspect]
     Active Substance: SACUBITRIL\VALSARTAN
     Indication: Cardiac failure
     Dosage: 1 DOSAGE FORM, BID (24/26 MG)
     Route: 048
     Dates: start: 20210612

REACTIONS (7)
  - COVID-19 [Unknown]
  - Pulmonary oedema [Unknown]
  - Alopecia [Unknown]
  - Memory impairment [Unknown]
  - Dry mouth [Unknown]
  - Dry eye [Unknown]
  - Abnormal loss of weight [Unknown]
